FAERS Safety Report 20840226 (Version 1)
Quarter: 2022Q2

REPORT INFORMATION
  Report Type: Spontaneous
  Country: US (occurrence: None)
  Receive Date: 20220516
  Receipt Date: 20220516
  Transmission Date: 20220721
  Serious: No
  Sender: FDA-Public Use
  Company Number: None

PATIENT
  Sex: Female

DRUGS (1)
  1. HUMIRA [Suspect]
     Active Substance: ADALIMUMAB
     Indication: Colitis ulcerative
     Dosage: 40 MG EVERY OTHER WEEK UNDER THE SKIN?
     Route: 058
     Dates: start: 20211005

REACTIONS (2)
  - Gastrointestinal disorder [None]
  - Condition aggravated [None]
